FAERS Safety Report 21853895 (Version 2)
Quarter: 2023Q1

REPORT INFORMATION
  Report Type: Spontaneous
  Country: US (occurrence: None)
  Receive Date: 20230112
  Receipt Date: 20230113
  Transmission Date: 20230418
  Serious: Yes (Death)
  Sender: FDA-Public Use
  Company Number: US-ROCHE-3263207

PATIENT
  Sex: Male

DRUGS (1)
  1. ROZLYTREK [Suspect]
     Active Substance: ENTRECTINIB
     Indication: Metastases to lung
     Route: 048
     Dates: start: 202104

REACTIONS (1)
  - Neurofibrosarcoma [Fatal]

NARRATIVE: CASE EVENT DATE: 20230107
